FAERS Safety Report 5588809-2 (Version None)
Quarter: 2008Q1

REPORT INFORMATION
  Report Type: 
  Country: None (occurrence: None)
  Receive Date: 20080111
  Receipt Date: 20080103
  Transmission Date: 20080703
  Serious: Yes (Life-Threatening)
  Sender: FDA-Public Use
  Company Number: US-BAXTER-2007BH010114

PATIENT
  Age: 23 Year
  Sex: Female

DRUGS (1)
  1. MORPHINE SULFATE [Suspect]
     Indication: PROCEDURAL PAIN
     Route: 042
     Dates: start: 20071219, end: 20071220

REACTIONS (1)
  - CARDIO-RESPIRATORY ARREST [None]
